FAERS Safety Report 7164248-8 (Version None)
Quarter: 2010Q4

REPORT INFORMATION
  Report Type: 
  Country: None (occurrence: None)
  Receive Date: 20101203
  Receipt Date: 20100716
  Transmission Date: 20110411
  Serious: Yes (Death, Other)
  Sender: FDA-Public Use
  Company Number: ALA_00625_2010

PATIENT
  Sex: Female

DRUGS (2)
  1. REGLAN [Suspect]
     Indication: DIABETIC GASTROPARESIS
     Dosage: DF ORAL
     Route: 048
     Dates: start: 20080501, end: 20090301
  2. REGLAN [Suspect]
     Indication: DYSPHAGIA
     Dosage: DF ORAL
     Route: 048
     Dates: start: 20080501, end: 20090301

REACTIONS (5)
  - ECONOMIC PROBLEM [None]
  - EMOTIONAL DISORDER [None]
  - EXTRAPYRAMIDAL DISORDER [None]
  - INJURY [None]
  - TARDIVE DYSKINESIA [None]
